FAERS Safety Report 7115606-9 (Version None)
Quarter: 2010Q4

REPORT INFORMATION
  Report Type: 
  Country: None (occurrence: None)
  Receive Date: 20101122
  Receipt Date: 20101110
  Transmission Date: 20110411
  Serious: Yes (Other)
  Sender: FDA-Public Use
  Company Number: US-ELI_LILLY_AND_COMPANY-US201011003306

PATIENT
  Age: 36 Year
  Sex: Male

DRUGS (1)
  1. EFFIENT [Suspect]
     Indication: THROMBOSIS
     Dosage: 10 MG, DAILY (1/D)
     Route: 065
     Dates: start: 20091001

REACTIONS (5)
  - ACUTE MYOCARDIAL INFARCTION [None]
  - ARRHYTHMIA [None]
  - CORONARY ARTERY OCCLUSION [None]
  - DRUG INEFFECTIVE [None]
  - IN-STENT CORONARY ARTERY RESTENOSIS [None]
